FAERS Safety Report 8031699-9 (Version None)
Quarter: 2012Q1

REPORT INFORMATION
  Report Type: 
  Country: None (occurrence: None)
  Receive Date: 20120109
  Receipt Date: 20120103
  Transmission Date: 20120608
  Serious: Yes (Hospitalization)
  Sender: FDA-Public Use
  Company Number: GR-ABBOTT-12P-066-0889123-00

PATIENT
  Sex: Male
  Weight: 72.7 kg

DRUGS (10)
  1. EFFEXOR [Concomitant]
     Indication: DEPRESSION
     Route: 048
     Dates: start: 20101029
  2. ZEMPLAR [Suspect]
     Indication: RENAL FAILURE CHRONIC
     Route: 048
     Dates: start: 20100127, end: 20101129
  3. CARVEDILOL [Concomitant]
     Indication: HYPERTENSION
     Route: 048
     Dates: start: 20100512
  4. LANTUS [Concomitant]
     Indication: TYPE 2 DIABETES MELLITUS
     Dosage: IN THE EVENING
     Route: 058
     Dates: start: 20100512
  5. TITRALAC [Concomitant]
     Indication: HYPERPHOSPHATAEMIA
     Route: 048
     Dates: start: 20100512
  6. SINTROM [Concomitant]
     Indication: ARRHYTHMIA
     Route: 048
     Dates: start: 20101030
  7. FISIOTENS [Concomitant]
     Indication: HYPERTENSION
     Route: 048
     Dates: start: 20101029
  8. ALLOPURINOL [Concomitant]
     Indication: HYPERURICAEMIA
     Route: 048
     Dates: start: 20100512
  9. NORVASC [Concomitant]
     Indication: HYPERTENSION
     Dates: start: 20101030
  10. LANTHANUM CARBONATE [Concomitant]
     Indication: HYPERPHOSPHATAEMIA
     Route: 048
     Dates: start: 20101029

REACTIONS (1)
  - RENAL FAILURE ACUTE [None]
